FAERS Safety Report 8877714 (Version 2)
Quarter: 2012Q4

REPORT INFORMATION
  Report Type: 
  Country: SE (occurrence: SE)
  Receive Date: 20121024
  Receipt Date: 20121031
  Transmission Date: 20130627
  Serious: Yes (Hospitalization)
  Sender: FDA-Public Use
  Company Number: PHHY2012SE094359

PATIENT
  Age: 33 Year
  Sex: Female

DRUGS (1)
  1. FTY 720 [Suspect]
     Indication: MULTIPLE SCLEROSIS
     Dosage: 0.5 mg, QD
     Route: 048
     Dates: start: 20120403, end: 20120404

REACTIONS (1)
  - Ventricular tachycardia [Recovered/Resolved]
